FAERS Safety Report 10385936 (Version 2)
Quarter: 2014Q3

REPORT INFORMATION
  Report Type: Spontaneous
  Country: US (occurrence: US)
  Receive Date: 20140814
  Receipt Date: 20140814
  Transmission Date: 20150326
  Serious: Yes (Other)
  Sender: FDA-Public Use
  Company Number: US-009507513-2011SP009617

PATIENT
  Sex: Female
  Weight: 92.99 kg

DRUGS (1)
  1. NUVARING [Suspect]
     Active Substance: ETHINYL ESTRADIOL\ETONOGESTREL
     Indication: CONTRACEPTION
     Dates: start: 20081124, end: 20090308

REACTIONS (5)
  - Deep vein thrombosis [Recovered/Resolved]
  - Sinus disorder [Recovering/Resolving]
  - Cyst [Not Recovered/Not Resolved]
  - Pulmonary embolism [Recovered/Resolved]
  - Tension headache [Unknown]

NARRATIVE: CASE EVENT DATE: 20090129
